FAERS Safety Report 8551676-9 (Version None)
Quarter: 2012Q3

REPORT INFORMATION
  Report Type: 
  Country: None (occurrence: None)
  Receive Date: 20120730
  Receipt Date: 20120724
  Transmission Date: 20120928
  Serious: Yes (Death, Hospitalization)
  Sender: FDA-Public Use
  Company Number: US-CELGENEUS-163-50794-12060751

PATIENT
  Age: 81 Year
  Sex: Female
  Weight: 95.703 kg

DRUGS (10)
  1. HYDROXYUREA [Concomitant]
     Dosage: 3000 MILLIGRAM
     Route: 048
     Dates: end: 20120118
  2. LORAZEPAM [Concomitant]
     Dosage: 1 MILLIGRAM
     Route: 048
     Dates: start: 20120130, end: 20120202
  3. VIDAZA [Suspect]
     Dosage: 75 MILLIGRAM/SQ. METER
     Route: 058
     Dates: start: 20120118, end: 20120124
  4. GEMTUZUMAB [Suspect]
     Dosage: 3 MILLIGRAM/SQ. METER
     Route: 041
     Dates: start: 20120118, end: 20120125
  5. LOSARTAN POTASSIUM [Concomitant]
     Dosage: 50/12.5
     Route: 048
     Dates: start: 20120130, end: 20120202
  6. ONDANSETRON HYDROCHLORIDE [Concomitant]
     Dosage: 8 MILLIGRAM
     Route: 048
     Dates: start: 20120130, end: 20120204
  7. HYDROMORPHONE HYDROCHLORIDE [Concomitant]
     Dosage: 1 MILLIGRAM
     Route: 041
     Dates: start: 20120202, end: 20120204
  8. LORAZEPAM [Concomitant]
     Dosage: 1 MILLIGRAM
     Route: 041
     Dates: start: 20120202, end: 20120204
  9. COREG [Concomitant]
     Dosage: 12.5 MILLIGRAM
     Route: 048
     Dates: start: 20120130, end: 20120202
  10. ALBUTEROL SULFATE AUTOHALER [Concomitant]
     Dosage: 1 INHALATION
     Route: 055
     Dates: start: 20120202, end: 20120204

REACTIONS (3)
  - LUNG INFECTION [None]
  - BACTERAEMIA [None]
  - ACUTE MYELOID LEUKAEMIA [None]
